FAERS Safety Report 18401031 (Version 2)
Quarter: 2020Q4

REPORT INFORMATION
  Report Type: Other
  Country: US (occurrence: US)
  Receive Date: 20201020
  Receipt Date: 20201230
  Transmission Date: 20210114
  Serious: Yes (Other)
  Sender: FDA-Public Use
  Company Number: US-ROCHE-2679088

PATIENT
  Sex: Female

DRUGS (20)
  1. ACTEMRA [Suspect]
     Active Substance: TOCILIZUMAB
  2. ACTEMRA [Suspect]
     Active Substance: TOCILIZUMAB
  3. CARBIDOPA. [Concomitant]
     Active Substance: CARBIDOPA
     Dosage: TAKE 1.5 TABLET 3 TIMES A DAY BY ORAL ROUTE
     Route: 048
  4. HUMALOG [Concomitant]
     Active Substance: INSULIN LISPRO
     Dosage: INJECT 6 UNIT 3 TIMES A DAY BY SUBCUTANEOUS ROUTE
     Route: 058
  5. ACTEMRA [Suspect]
     Active Substance: TOCILIZUMAB
     Indication: RHEUMATOID ARTHRITIS
     Dosage: INJECT 0.9 ML BY SUBQ ROUTE EVERY WEEK; ONGOING: YES?STRENGTH: 162 MG / 0.9 ML??INJECT 0.9 ML BY SUB
     Route: 058
     Dates: start: 201905
  6. ACTEMRA [Suspect]
     Active Substance: TOCILIZUMAB
  7. CYCLOBENZAPRINE. [Concomitant]
     Active Substance: CYCLOBENZAPRINE
     Dosage: TAKE 0.5 TABLET EVERY DAY BY ORAL ROUTE
     Route: 048
     Dates: start: 20200928
  8. ACTEMRA [Suspect]
     Active Substance: TOCILIZUMAB
  9. LOSARTAN. [Concomitant]
     Active Substance: LOSARTAN
     Dosage: TAKE 1 TABLET EVERY DAY BY ORAL ROUTE
     Route: 048
     Dates: start: 20200928
  10. ROSUVASTATIN. [Concomitant]
     Active Substance: ROSUVASTATIN
     Dosage: TAKE 1 TABLET 3 TIMES A WEEK BY ORAL ROUTE
     Route: 048
     Dates: start: 20200928
  11. ACTEMRA [Suspect]
     Active Substance: TOCILIZUMAB
  12. ACTEMRA [Suspect]
     Active Substance: TOCILIZUMAB
     Indication: RHEUMATOID ARTHRITIS
  13. LANTUS SOLOSTAR [Concomitant]
     Active Substance: INSULIN GLARGINE
     Dosage: INJECT 10 UNIT TWICE A DAY BY SUBCUTANEOUS ROUTE
     Route: 058
     Dates: start: 20200928
  14. ACTEMRA [Suspect]
     Active Substance: TOCILIZUMAB
  15. SYNTHROID [Concomitant]
     Active Substance: LEVOTHYROXINE SODIUM
     Dosage: TAKE 1 TABLET EVERY DAY BY ORAL ROUTE
     Route: 048
  16. ACTEMRA [Suspect]
     Active Substance: TOCILIZUMAB
  17. ACTEMRA [Suspect]
     Active Substance: TOCILIZUMAB
  18. ACTEMRA [Suspect]
     Active Substance: TOCILIZUMAB
     Indication: GIANT CELL ARTERITIS
     Dosage: INJECT 0.9 ML EVERY 2 WEEKS BY SUBCUTANEOUS ROUTE
     Route: 058
     Dates: start: 20200928
  19. ACTEMRA [Suspect]
     Active Substance: TOCILIZUMAB
     Indication: GIANT CELL ARTERITIS
  20. PREDNISONE. [Concomitant]
     Active Substance: PREDNISONE

REACTIONS (6)
  - Fall [Unknown]
  - Head injury [Unknown]
  - Balance disorder [Unknown]
  - Concussion [Unknown]
  - Ill-defined disorder [Unknown]
  - Dizziness [Unknown]
